FAERS Safety Report 9366355 (Version 1)
Quarter: 2013Q2

REPORT INFORMATION
  Report Type: Spontaneous
  Country: US (occurrence: US)
  Receive Date: 20130625
  Receipt Date: 20130625
  Transmission Date: 20140414
  Serious: No
  Sender: FDA-Public Use
  Company Number: US-GLAXOSMITHKLINE-A1009958A

PATIENT
  Age: 69 Year
  Sex: Female

DRUGS (15)
  1. VERAMYST [Suspect]
     Indication: SINUS DISORDER
     Dosage: 2SPR PER DAY
     Route: 045
     Dates: start: 201210
  2. PLAVIX [Concomitant]
  3. DIAVAN [Concomitant]
  4. RANEXA [Concomitant]
  5. KLOR-CON [Concomitant]
  6. XANAX [Concomitant]
  7. CYMBALTA [Concomitant]
  8. CRESTOR [Concomitant]
  9. FENOFIBRATE [Concomitant]
  10. METHAZOLAMIDE [Concomitant]
  11. SPIRIVA [Concomitant]
  12. NITROGLYCERINE [Concomitant]
  13. BROVANA [Concomitant]
  14. BUDESONIDE [Concomitant]
  15. HYDROCHLOROTHIAZIDE [Concomitant]

REACTIONS (5)
  - Oral herpes [Recovered/Resolved]
  - Oral herpes [Recovered/Resolved]
  - Dry mouth [Recovered/Resolved]
  - Dyspnoea [Recovered/Resolved]
  - Headache [Recovered/Resolved]
